FAERS Safety Report 6051225-3 (Version None)
Quarter: 2009Q1

REPORT INFORMATION
  Report Type: 
  Country: None (occurrence: None)
  Receive Date: 20090121
  Receipt Date: 20090105
  Transmission Date: 20090719
  Serious: Yes (Death, Other)
  Sender: FDA-Public Use
  Company Number: 2009000008

PATIENT
  Age: 50 Year
  Sex: Male

DRUGS (13)
  1. ERLOTINIB                (ERLOTINIB) [Suspect]
     Indication: LUNG ADENOCARCINOMA
     Dosage: (150 MG,QD), ORAL
     Route: 048
     Dates: start: 20080527, end: 20081210
  2. FERROMIA (FERROUS CITRATE) [Concomitant]
  3. ACETAMINOPHEN [Concomitant]
  4. LENDORM [Concomitant]
  5. LOXONIN (LOXOPROFEN SODIUM) [Concomitant]
  6. MUCOSTA (REBAMIPIDE) [Concomitant]
  7. OXYCONTIN [Concomitant]
  8. OXYCODONE HCL [Concomitant]
  9. DUROTEP [Concomitant]
  10. MAGMITT [Concomitant]
  11. SENNOSIDE [Concomitant]
  12. NOVAMIN (PROCHLORPERAZINE) [Concomitant]
  13. BISOPROLOL FUMARATE [Concomitant]

REACTIONS (3)
  - BLOOD AMYLASE INCREASED [None]
  - LUNG ADENOCARCINOMA [None]
  - MALIGNANT NEOPLASM PROGRESSION [None]
